FAERS Safety Report 23504321 (Version 1)
Quarter: 2024Q1

REPORT INFORMATION
  Report Type: Spontaneous
  Country: US (occurrence: US)
  Receive Date: 20240209
  Receipt Date: 20240209
  Transmission Date: 20240410
  Serious: Yes (Hospitalization, Other)
  Sender: FDA-Public Use
  Company Number: US-HIKMA PHARMACEUTICALS USA INC.-US-H14001-24-00853

PATIENT
  Age: 12 Year
  Sex: Female
  Weight: 39.4 kg

DRUGS (10)
  1. MERCAPTOPURINE [Suspect]
     Active Substance: MERCAPTOPURINE
     Indication: Philadelphia positive acute lymphocytic leukaemia
     Dosage: 100 MG FOR 5 DAYS/WEEK, 75 MG FOR 2 DAYS/WEEK
     Route: 048
     Dates: start: 20230905, end: 20231012
  2. MERCAPTOPURINE [Suspect]
     Active Substance: MERCAPTOPURINE
     Dosage: UNKNOWN
     Route: 048
     Dates: start: 20231120
  3. METHOTREXATE [Suspect]
     Active Substance: METHOTREXATE
     Indication: Philadelphia positive acute lymphocytic leukaemia
     Dosage: 25 MILLIGRAM, WEEKLY, EXCEPT ON WEEK OF LP
     Route: 048
     Dates: start: 20230912, end: 20231012
  4. METHOTREXATE [Suspect]
     Active Substance: METHOTREXATE
     Dosage: UNKNOWN
     Route: 048
     Dates: start: 20231120
  5. METHOTREXATE [Suspect]
     Active Substance: METHOTREXATE
     Indication: Philadelphia positive acute lymphocytic leukaemia
     Dosage: 15 MILLIGRAM, DAYS 1 AND 29 OF CYCLES 1 AND 2
     Route: 037
     Dates: start: 20230905
  6. PREDNISONE [Suspect]
     Active Substance: PREDNISONE
     Indication: Philadelphia positive acute lymphocytic leukaemia
     Dosage: 25 MILLIGRAM, BID, ON DAYS 1-5, 29-33, 59-61
     Route: 048
     Dates: start: 20230905
  7. RUXOLITINIB PHOSPHATE [Suspect]
     Active Substance: RUXOLITINIB PHOSPHATE
     Dosage: 60 MILLIGRAM, BID
     Route: 048
     Dates: start: 20231030
  8. RUXOLITINIB PHOSPHATE [Suspect]
     Active Substance: RUXOLITINIB PHOSPHATE
     Indication: Philadelphia positive acute lymphocytic leukaemia
     Dosage: 60 MILLIGRAM, BID, FOR 14 DAYS (DAYS 1-14, 29-42, 57-70)
     Route: 048
     Dates: start: 20230905, end: 20231012
  9. VINCRISTINE [Suspect]
     Active Substance: VINCRISTINE
     Indication: Philadelphia positive acute lymphocytic leukaemia
     Dosage: 1.5 MILLIGRAM/SQ. METER, ONCE ON DAYS 1, 29, 57
     Route: 042
     Dates: start: 20230905
  10. ZOFRAN [Concomitant]
     Active Substance: ONDANSETRON HYDROCHLORIDE
     Indication: Product used for unknown indication
     Dosage: UNKNOWN
     Route: 065
     Dates: start: 20221018

REACTIONS (39)
  - Bilirubin conjugated increased [Recovered/Resolved]
  - Febrile neutropenia [Recovered/Resolved]
  - Cholestasis [Recovered/Resolved with Sequelae]
  - Rhinovirus infection [Unknown]
  - Neutropenia [Recovered/Resolved]
  - Blood bilirubin increased [Recovered/Resolved]
  - Diarrhoea [Unknown]
  - Alanine aminotransferase increased [Unknown]
  - Aspartate aminotransferase increased [Unknown]
  - Vomiting [Unknown]
  - Fatigue [Unknown]
  - Hepatomegaly [Unknown]
  - Tachycardia [Unknown]
  - Ocular icterus [Recovered/Resolved]
  - Jaundice [Recovered/Resolved]
  - Pallor [Unknown]
  - Hyperbilirubinaemia [Recovered/Resolved]
  - Pyrexia [Recovered/Resolved]
  - Liver injury [Recovered/Resolved with Sequelae]
  - Blood glucose decreased [Unknown]
  - Cholestatic liver injury [Recovered/Resolved with Sequelae]
  - Sepsis [Unknown]
  - Hepatitis viral [Unknown]
  - Stomatitis [Unknown]
  - Venoocclusive liver disease [Unknown]
  - Gallbladder enlargement [Unknown]
  - Liver disorder [Unknown]
  - Hepatotoxicity [Unknown]
  - Venoocclusive disease [Unknown]
  - Abdominal pain [Unknown]
  - Musculoskeletal chest pain [Unknown]
  - Electrolyte imbalance [Unknown]
  - Dehydration [Unknown]
  - Drug-induced liver injury [Unknown]
  - Nausea [Unknown]
  - Lethargy [Unknown]
  - Condition aggravated [Unknown]
  - Cough [Unknown]
  - Illness [Unknown]

NARRATIVE: CASE EVENT DATE: 20231006
